FAERS Safety Report 4612089-5 (Version None)
Quarter: 2005Q2

REPORT INFORMATION
  Report Type: 
  Country: None (occurrence: None)
  Receive Date: 20050308
  Receipt Date: 20041227
  Transmission Date: 20051028
  Serious: Yes (Other)
  Sender: FDA-Public Use
  Company Number: 2004UW26141

PATIENT
  Age: 61 Year
  Sex: Male
  Weight: 97.522 kg

DRUGS (2)
  1. CRESTOR [Suspect]
     Indication: BLOOD CHOLESTEROL INCREASED
     Dates: start: 20041101
  2. TOPROL-XL [Concomitant]

REACTIONS (1)
  - EPISTAXIS [None]
